FAERS Safety Report 13805223 (Version 2)
Quarter: 2017Q4

REPORT INFORMATION
  Report Type: Spontaneous
  Country: US (occurrence: US)
  Receive Date: 20170728
  Receipt Date: 20171025
  Transmission Date: 20180320
  Serious: No
  Sender: FDA-Public Use
  Company Number: US-TEVA-792102ACC

PATIENT
  Age: 18 Year
  Sex: Female
  Weight: 67.19 kg

DRUGS (1)
  1. PARAGARD T 380A [Suspect]
     Active Substance: COPPER
     Indication: CONTRACEPTION
     Dates: start: 20170705, end: 20170721

REACTIONS (3)
  - Vaginal haemorrhage [Recovered/Resolved]
  - Uterine cervical pain [Recovered/Resolved]
  - Device expulsion [Recovered/Resolved]

NARRATIVE: CASE EVENT DATE: 20170705
